FAERS Safety Report 17831252 (Version 1)
Quarter: 2020Q2

REPORT INFORMATION
  Report Type: Spontaneous
  Country: MX (occurrence: MX)
  Receive Date: 20200527
  Receipt Date: 20200527
  Transmission Date: 20200714
  Serious: Yes (Hospitalization, Other)
  Sender: FDA-Public Use
  Company Number: MX-SA-BMS16674053

PATIENT
  Age: 51 Year
  Sex: Male
  Weight: 74 kg

DRUGS (4)
  1. AMARYL M [Suspect]
     Active Substance: GLIMEPIRIDE\METFORMIN
     Indication: TYPE 2 DIABETES MELLITUS
     Dosage: 1 DF,UNK
     Route: 048
     Dates: start: 201109
  2. COAPROVEL TABS 150MG/12.5MG [Suspect]
     Active Substance: HYDROCHLOROTHIAZIDE\IRBESARTAN
     Indication: HYPERTENSION
     Dosage: 1 DF,UNK
     Route: 048
     Dates: start: 201109
  3. HUMALOG [Concomitant]
     Active Substance: INSULIN LISPRO
     Indication: TYPE 2 DIABETES MELLITUS
     Dosage: 10 IU,UNK
     Route: 048
     Dates: start: 201204
  4. METFORMIN HYDROCHLORIDE. [Suspect]
     Active Substance: METFORMIN HYDROCHLORIDE
     Indication: TYPE 2 DIABETES MELLITUS
     Dosage: 1 DF,UNK
     Route: 048
     Dates: start: 201109

REACTIONS (4)
  - Diabetic retinopathy [Unknown]
  - Vision blurred [Unknown]
  - Hyperglycaemia [Recovered/Resolved]
  - Eye disorder [Recovered/Resolved]

NARRATIVE: CASE EVENT DATE: 201204
